FAERS Safety Report 4826221-1 (Version None)
Quarter: 2005Q4

REPORT INFORMATION
  Report Type: 
  Country: None (occurrence: None)
  Receive Date: 20051014
  Receipt Date: 20050719
  Transmission Date: 20060501
  Serious: No
  Sender: FDA-Public Use
  Company Number: 2005SP001955

PATIENT
  Age: 24 Year
  Sex: Female
  Weight: 60.3284 kg

DRUGS (1)
  1. LUNESTA [Suspect]
     Dates: start: 20050501

REACTIONS (1)
  - ABDOMINAL DISTENSION [None]
